FAERS Safety Report 5831219-0 (Version None)
Quarter: 2008Q3

REPORT INFORMATION
  Report Type: 
  Country: None (occurrence: None)
  Receive Date: 20080801
  Receipt Date: 20080402
  Transmission Date: 20090109
  Serious: No
  Sender: FDA-Public Use
  Company Number: US-BRISTOL-MYERS SQUIBB COMPANY-12720975

PATIENT
  Age: 80 Year
  Sex: Female
  Weight: 67 kg

DRUGS (7)
  1. COUMADIN [Suspect]
     Indication: ATRIAL FIBRILLATION
     Dosage: RECENT DOSE IS 2.5MG DAILY
     Route: 048
     Dates: start: 20020606
  2. VICODIN [Concomitant]
     Indication: MIGRAINE
  3. BETAPACE [Concomitant]
  4. CELEBREX [Concomitant]
  5. MULTI-VITAMIN [Concomitant]
  6. AMIODARONE [Concomitant]
  7. TYLENOL [Concomitant]

REACTIONS (4)
  - ASTHENIA [None]
  - ECCHYMOSIS [None]
  - INTERNATIONAL NORMALISED RATIO DECREASED [None]
  - STOMACH DISCOMFORT [None]
